FAERS Safety Report 4436725-1 (Version None)
Quarter: 2004Q3

REPORT INFORMATION
  Report Type: 
  Country: None (occurrence: None)
  Receive Date: 20040726
  Receipt Date: 20040525
  Transmission Date: 20050211
  Serious: No
  Sender: FDA-Public Use
  Company Number: USA040361141

PATIENT
  Age: 79 Year
  Sex: Female
  Weight: 60 kg

DRUGS (5)
  1. FORTEO [Suspect]
     Indication: OSTEOPOROSIS
     Dates: start: 20040102
  2. ATACAND [Concomitant]
  3. NEXIUM [Concomitant]
  4. MULTIVITAMIN [Concomitant]
  5. SYNTHROID [Concomitant]

REACTIONS (3)
  - BLOOD PRESSURE INCREASED [None]
  - HAIR COLOUR CHANGES [None]
  - INJECTION SITE HAEMORRHAGE [None]
